FAERS Safety Report 4938834-7 (Version None)
Quarter: 2006Q1

REPORT INFORMATION
  Report Type: 
  Country: None (occurrence: None)
  Receive Date: 20060306
  Receipt Date: 20060222
  Transmission Date: 20060701
  Serious: Yes (Other)
  Sender: FDA-Public Use
  Company Number: 2006026631

PATIENT
  Sex: Female
  Weight: 43.0917 kg

DRUGS (3)
  1. NORVASC [Suspect]
     Indication: HYPERTENSION
     Dosage: SEE IMAGE,
  2. VITAMINS (VITAMINS) [Concomitant]
  3. VITAMINS, OTHER COMBINATIONS (VITAMINS, OTHER COMBINATIONS) [Concomitant]

REACTIONS (4)
  - BLOOD PRESSURE INADEQUATELY CONTROLLED [None]
  - BODY HEIGHT DECREASED [None]
  - HEADACHE [None]
  - LYMPHOPLASMACYTOID LYMPHOMA/IMMUNOCYTOMA [None]
